FAERS Safety Report 23287794 (Version 2)
Quarter: 2024Q1

REPORT INFORMATION
  Report Type: Report from Study
  Country: US (occurrence: US)
  Receive Date: 20231212
  Receipt Date: 20240311
  Transmission Date: 20240409
  Serious: Yes (Other)
  Sender: FDA-Public Use
  Company Number: US-ABBVIE-5531569

PATIENT
  Sex: Male

DRUGS (2)
  1. RINVOQ [Suspect]
     Active Substance: UPADACITINIB
     Indication: Rheumatoid arthritis
     Dosage: FORM STRENGTH 15 MILLIGRAMS?LAST ADMIN DATE:  2023?ER
     Route: 048
     Dates: start: 20230502
  2. RINVOQ [Suspect]
     Active Substance: UPADACITINIB
     Indication: Rheumatoid arthritis
     Dosage: FORM STRENGTH 15 MILLIGRAMS?ER
     Route: 048
     Dates: start: 20230928

REACTIONS (14)
  - Meniscus operation [Unknown]
  - Skin cancer [Unknown]
  - Acne [Unknown]
  - Erythema [Unknown]
  - Pain of skin [Unknown]
  - Musculoskeletal stiffness [Unknown]
  - Unevaluable event [Unknown]
  - Back pain [Not Recovered/Not Resolved]
  - Muscular weakness [Unknown]
  - Arthralgia [Unknown]
  - Therapeutic product effect incomplete [Unknown]
  - Skin burning sensation [Unknown]
  - Skin exfoliation [Unknown]
  - Osteoarthritis [Unknown]

NARRATIVE: CASE EVENT DATE: 20230101
